FAERS Safety Report 5557927-7 (Version None)
Quarter: 2007Q4

REPORT INFORMATION
  Report Type: 
  Country: None (occurrence: None)
  Receive Date: 20071214
  Receipt Date: 20071205
  Transmission Date: 20080405
  Serious: Yes (Death)
  Sender: FDA-Public Use
  Company Number: NG-ROCHE-535318

PATIENT
  Age: 8 Year
  Sex: Male

DRUGS (4)
  1. CEFTRIAXONE SODIUM [Suspect]
     Indication: DRUG USE FOR UNKNOWN INDICATION
     Route: 042
  2. PREDNISOLONE [Concomitant]
  3. IBUPROFEN [Concomitant]
  4. ERYTHROMYCIN [Concomitant]

REACTIONS (4)
  - PRURITUS [None]
  - SYSTEMIC LUPUS ERYTHEMATOSUS [None]
  - URTICARIA [None]
  - VOMITING [None]
